FAERS Safety Report 8339286-X (Version None)
Quarter: 2012Q2

REPORT INFORMATION
  Report Type: 
  Country: None (occurrence: None)
  Receive Date: 20120507
  Receipt Date: 20120502
  Transmission Date: 20120825
  Serious: Yes (Hospitalization)
  Sender: FDA-Public Use
  Company Number: PH-JNJFOC-20080802706

PATIENT
  Sex: Female
  Weight: 53.6 kg

DRUGS (43)
  1. GOLIMUMAB [Suspect]
     Route: 058
     Dates: start: 20070430
  2. GOLIMUMAB [Suspect]
     Route: 058
     Dates: start: 20061016
  3. METHOTREXATE [Suspect]
     Indication: RHEUMATOID ARTHRITIS
     Route: 048
     Dates: start: 20080114, end: 20080204
  4. METHOTREXATE [Suspect]
     Route: 048
     Dates: start: 20080317, end: 20080317
  5. CALCIUM LACTATE [Concomitant]
     Route: 048
     Dates: start: 20060801, end: 20080808
  6. GOLIMUMAB [Suspect]
     Route: 058
     Dates: start: 20080318
  7. GOLIMUMAB [Suspect]
     Route: 058
     Dates: start: 20071016
  8. METHOTREXATE [Suspect]
     Route: 048
     Dates: start: 20061127, end: 20061204
  9. METHOTREXATE [Suspect]
     Route: 048
     Dates: start: 20061211, end: 20070423
  10. FOLIC ACID [Concomitant]
     Route: 048
     Dates: start: 20061018, end: 20080808
  11. NEOBLOC [Concomitant]
     Route: 048
     Dates: start: 20070226, end: 20080808
  12. FERROUS SULFATE TAB [Concomitant]
     Route: 048
     Dates: start: 20070413, end: 20080812
  13. GOLIMUMAB [Suspect]
     Route: 058
     Dates: start: 20080211
  14. GOLIMUMAB [Suspect]
     Route: 058
     Dates: start: 20071112
  15. GOLIMUMAB [Suspect]
     Route: 058
     Dates: start: 20070226
  16. METHOTREXATE [Suspect]
     Route: 048
     Dates: start: 20071217, end: 20080107
  17. METHOTREXATE [Suspect]
     Route: 048
     Dates: start: 20080218, end: 20080303
  18. CAPTOPRIL [Suspect]
     Indication: PERICARDIAL EFFUSION
     Route: 048
     Dates: start: 20080808, end: 20080813
  19. GOLIMUMAB [Suspect]
     Route: 058
     Dates: start: 20070825
  20. GOLIMUMAB [Suspect]
     Route: 058
     Dates: start: 20070129
  21. GOLIMUMAB [Suspect]
     Route: 058
     Dates: start: 20070110
  22. GOLIMUMAB [Suspect]
     Route: 058
     Dates: start: 20061115
  23. GOLIMUMAB [Suspect]
     Route: 058
     Dates: start: 20080723
  24. METHOTREXATE [Suspect]
     Route: 048
     Dates: start: 20061030, end: 20061120
  25. FUROSEMIDE [Suspect]
     Indication: PERICARDIAL EFFUSION
     Route: 048
     Dates: start: 20080808, end: 20080813
  26. CELEBREX [Concomitant]
     Route: 048
     Dates: start: 20070416
  27. VITAMIN B COMPLEX CAP [Concomitant]
     Route: 048
     Dates: start: 20080812
  28. GOLIMUMAB [Suspect]
     Route: 058
     Dates: start: 20071212
  29. GOLIMUMAB [Suspect]
     Route: 058
     Dates: start: 20070917
  30. GOLIMUMAB [Suspect]
     Route: 058
     Dates: start: 20070528
  31. METHOTREXATE [Suspect]
     Route: 048
     Dates: start: 20080324, end: 20080324
  32. METHOTREXATE [Suspect]
     Route: 048
     Dates: start: 20080623
  33. GOLIMUMAB [Suspect]
     Indication: RHEUMATOID ARTHRITIS
     Route: 058
     Dates: start: 20080331
  34. GOLIMUMAB [Suspect]
     Route: 058
     Dates: start: 20080110
  35. GOLIMUMAB [Suspect]
     Route: 058
     Dates: start: 20061216
  36. METHOTREXATE [Suspect]
     Route: 048
     Dates: start: 20080310, end: 20080310
  37. METHOTREXATE [Suspect]
     Route: 048
     Dates: start: 20061016, end: 20061023
  38. GOLIMUMAB [Suspect]
     Route: 058
     Dates: start: 20070730
  39. GOLIMUMAB [Suspect]
     Route: 058
     Dates: start: 20070702
  40. GOLIMUMAB [Suspect]
     Route: 058
     Dates: start: 20070402
  41. METHOTREXATE [Suspect]
     Route: 048
     Dates: start: 20070430, end: 20071126
  42. BIOGESIC [Concomitant]
     Route: 048
     Dates: start: 19910101
  43. MYRIN P-FORTE [Concomitant]
     Route: 048
     Dates: start: 20080812, end: 20081013

REACTIONS (3)
  - HYPOTENSION [None]
  - PERICARDIAL EFFUSION [None]
  - PULMONARY TUBERCULOSIS [None]
